FAERS Safety Report 12283648 (Version 1)
Quarter: 2016Q2

REPORT INFORMATION
  Report Type: Spontaneous
  Country: BR (occurrence: BR)
  Receive Date: 20160419
  Receipt Date: 20160419
  Transmission Date: 20160815
  Serious: Yes (Other)
  Sender: FDA-Public Use
  Company Number: BR-PFIZER INC-2016220821

PATIENT
  Age: 76 Year
  Sex: Female
  Weight: 42 kg

DRUGS (9)
  1. CORUS [Concomitant]
     Active Substance: LOSARTAN POTASSIUM
     Indication: STRESS
  2. CORUS [Concomitant]
     Active Substance: LOSARTAN POTASSIUM
     Indication: BLOOD PRESSURE INCREASED
     Dosage: 12.5 MG, HALF TABLET OF 25MG A DAY
     Route: 048
     Dates: start: 2015
  3. OMEGA 3 /01334101/ [Concomitant]
     Active Substance: OMEGA-3 FATTY ACIDS
     Indication: PERIPHERAL VASCULAR DISORDER
  4. DIOSMIN W/HESPERIDIN [Concomitant]
     Indication: PERIPHERAL VASCULAR DISORDER
     Dosage: 1 DF, 1 SACHET PER DAY
     Route: 048
     Dates: start: 2014
  5. CORUS [Concomitant]
     Active Substance: LOSARTAN POTASSIUM
     Indication: ANXIETY
  6. MELATONIN [Concomitant]
     Active Substance: MELATONIN
     Dosage: 2 TABLETS AT NIGHT
     Route: 060
     Dates: start: 2014
  7. XALATAN [Suspect]
     Active Substance: LATANOPROST
     Indication: INTRAOCULAR PRESSURE INCREASED
     Dosage: 2 GTT, 1 DROP IN EACH EYE ONCE A DAY
     Route: 047
     Dates: start: 2009
  8. OMEGA 3 /01334101/ [Concomitant]
     Active Substance: OMEGA-3 FATTY ACIDS
     Indication: BLOOD CHOLESTEROL
     Dosage: 2400 MG, 1 TABLET A DAY
     Route: 048
  9. ALENDRONATE SODIUM. [Concomitant]
     Active Substance: ALENDRONATE SODIUM
     Indication: OSTEOPOROSIS
     Dosage: 70 MG, 1 TABLET ONCE A WEEK
     Route: 048
     Dates: start: 2011

REACTIONS (2)
  - Cataract [Unknown]
  - Visual acuity reduced [Unknown]
